FAERS Safety Report 9479395 (Version 1)
Quarter: 2013Q3

REPORT INFORMATION
  Report Type: Spontaneous
  Country: US (occurrence: US)
  Receive Date: 20130827
  Receipt Date: 20130827
  Transmission Date: 20140515
  Serious: Yes (Other)
  Sender: FDA-Public Use
  Company Number: US-PFIZER INC-2013245724

PATIENT
  Age: 37 Year
  Sex: Female
  Weight: 108 kg

DRUGS (5)
  1. LYRICA [Suspect]
     Indication: FIBROMYALGIA
     Dosage: UNK, 1X/DAY
     Route: 048
     Dates: start: 2011, end: 2011
  2. LYRICA [Suspect]
     Dosage: UNK, 2X/DAY
     Route: 048
     Dates: start: 2011, end: 2012
  3. CELEBREX [Suspect]
     Dosage: UNK
  4. BACLOFEN [Concomitant]
     Dosage: UNK
  5. TYLENOL W/CODEINE NO. 3 [Concomitant]
     Dosage: UNK

REACTIONS (6)
  - Weight increased [Recovering/Resolving]
  - Obesity [Unknown]
  - Drug ineffective [Unknown]
  - Red blood cell sedimentation rate increased [Unknown]
  - Malaise [Unknown]
  - Impaired work ability [Unknown]
